FAERS Safety Report 6715983-4 (Version None)
Quarter: 2010Q2

REPORT INFORMATION
  Report Type: 
  Country: None (occurrence: None)
  Receive Date: 20100506
  Receipt Date: 20100506
  Transmission Date: 20101027
  Serious: Yes (Disabling)
  Sender: FDA-Public Use
  Company Number: None

PATIENT
  Sex: Female
  Weight: 90.7194 kg

DRUGS (1)
  1. PROZAC [Suspect]
     Indication: DEPRESSION
     Dosage: 95 SAT 95 SUR 11 YRS AGO

REACTIONS (4)
  - AKATHISIA [None]
  - IMPAIRED DRIVING ABILITY [None]
  - PARKINSON'S DISEASE [None]
  - ROAD TRAFFIC ACCIDENT [None]
